FAERS Safety Report 6217713-1 (Version None)
Quarter: 2009Q2

REPORT INFORMATION
  Report Type: 
  Country: None (occurrence: None)
  Receive Date: 20090604
  Receipt Date: 20090604
  Transmission Date: 20091009
  Serious: Yes (Hospitalization)
  Sender: FDA-Public Use
  Company Number: None

PATIENT
  Age: 51 Year
  Sex: Male
  Weight: 103.4 kg

DRUGS (2)
  1. ADENOSINE [Suspect]
     Indication: CARDIOVASCULAR DISORDER
     Dates: start: 20090504, end: 20090504
  2. ADENOSINE [Suspect]
     Indication: SURGERY
     Dates: start: 20090504, end: 20090504

REACTIONS (3)
  - BRONCHOSPASM [None]
  - CARDIAC ARREST [None]
  - CYANOSIS [None]
